FAERS Safety Report 8112322-1 (Version None)
Quarter: 2012Q1

REPORT INFORMATION
  Report Type: 
  Country: None (occurrence: None)
  Receive Date: 20120203
  Receipt Date: 20120131
  Transmission Date: 20120608
  Serious: Yes (Other)
  Sender: FDA-Public Use
  Company Number: US-ALEXION-A201200164

PATIENT
  Sex: Female
  Weight: 81.5 kg

DRUGS (6)
  1. VALTREX [Concomitant]
     Dosage: UNK
  2. CELEBREX [Concomitant]
     Dosage: UNK
  3. SOLIRIS [Suspect]
     Dosage: 900 MG, Q2W
     Route: 042
     Dates: start: 20081013
  4. PREMARIN [Concomitant]
     Dosage: UNK
  5. TYLENOL W/ CODEINE [Concomitant]
     Dosage: UNK
  6. SOLIRIS [Suspect]
     Indication: PAROXYSMAL NOCTURNAL HAEMOGLOBINURIA
     Dosage: 600 MG, QW
     Route: 042
     Dates: start: 20080915

REACTIONS (1)
  - CEREBROVASCULAR ACCIDENT [None]
